FAERS Safety Report 5271881-7 (Version None)
Quarter: 2007Q1

REPORT INFORMATION
  Report Type: 
  Country: None (occurrence: None)
  Receive Date: 20070316
  Receipt Date: 20070302
  Transmission Date: 20070707
  Serious: Yes (Other)
  Sender: FDA-Public Use
  Company Number: 8022483

PATIENT
  Sex: Male

DRUGS (2)
  1. KEPPRA [Suspect]
  2. PHENYTOIN [Concomitant]

REACTIONS (1)
  - LEUKOPENIA [None]
